FAERS Safety Report 5070540-3 (Version None)
Quarter: 2006Q3

REPORT INFORMATION
  Report Type: 
  Country: None (occurrence: None)
  Receive Date: 20060804
  Receipt Date: 20060724
  Transmission Date: 20061208
  Serious: Yes (Hospitalization)
  Sender: FDA-Public Use
  Company Number: PHRM2006FR02175

PATIENT
  Age: 8 Year
  Sex: Male
  Weight: 30 kg

DRUGS (8)
  1. RIVOTRIL [Concomitant]
  2. OMEPRAZOLE [Concomitant]
     Dosage: 20 MG, QD
     Route: 048
  3. TEGRETOL [Suspect]
     Indication: STATUS EPILEPTICUS
     Dosage: 200 MG, BID
     Route: 048
     Dates: start: 20060428
  4. CELLTOP [Suspect]
     Dosage: 1 DF, QD
     Route: 048
     Dates: start: 20060605, end: 20060615
  5. ENDOXAN [Suspect]
     Dosage: 50 MG, QD
     Route: 048
     Dates: start: 20060509, end: 20060529
  6. CELEBREX [Suspect]
     Dosage: 100 MG, QD
     Route: 048
     Dates: start: 20060509
  7. DI-HYDAN [Suspect]
     Dosage: UNK, UNK
     Route: 048
     Dates: start: 20060428
  8. SOLUPRED [Concomitant]

REACTIONS (5)
  - DYSPNOEA [None]
  - EOSINOPHIL COUNT DECREASED [None]
  - FUNGUS SEROLOGY TEST POSITIVE [None]
  - PNEUMONIA [None]
  - PYREXIA [None]
